FAERS Safety Report 18843147 (Version 4)
Quarter: 2021Q3

REPORT INFORMATION
  Report Type: Other
  Country: US (occurrence: US)
  Receive Date: 20210204
  Receipt Date: 20210810
  Transmission Date: 20211014
  Serious: Yes (Hospitalization, Other)
  Sender: FDA-Public Use
  Company Number: US-ROCHE-2760586

PATIENT
  Age: 47 Year
  Sex: Female
  Weight: 77.63 kg

DRUGS (2)
  1. OCREVUS [Suspect]
     Active Substance: OCRELIZUMAB
     Indication: PRIMARY PROGRESSIVE MULTIPLE SCLEROSIS
     Dosage: ONGOING : YES
     Route: 042
     Dates: start: 2017
  2. OCREVUS [Suspect]
     Active Substance: OCRELIZUMAB
     Dosage: (PRESCRIBED AS 300 MG ON DAY 1 AND DAY 15 AND 600 MG ONCE IN 5 MONTHS)
     Route: 042
     Dates: start: 20181105

REACTIONS (3)
  - Multiple sclerosis [Unknown]
  - COVID-19 pneumonia [Not Recovered/Not Resolved]
  - Infectious thyroiditis [Not Recovered/Not Resolved]

NARRATIVE: CASE EVENT DATE: 20200707
